FAERS Safety Report 4491417-8 (Version None)
Quarter: 2004Q4

REPORT INFORMATION
  Report Type: 
  Country: None (occurrence: None)
  Receive Date: 20041101
  Receipt Date: 20041101
  Transmission Date: 20050328
  Serious: Yes (Other)
  Sender: FDA-Public Use
  Company Number: None

PATIENT
  Age: 92 Year
  Sex: Female

DRUGS (2)
  1. NAMENDA [Suspect]
     Indication: DEMENTIA ALZHEIMER'S TYPE
     Dosage: 5 MG BID ORAL
     Route: 048
     Dates: start: 20040323, end: 20040330
  2. NAMENDA [Suspect]
     Dosage: 10 MG BID ORAL
     Route: 048
     Dates: start: 20040330, end: 20040404

REACTIONS (1)
  - CONVULSION [None]
